FAERS Safety Report 6177924-0 (Version None)
Quarter: 2009Q2

REPORT INFORMATION
  Report Type: 
  Country: None (occurrence: None)
  Receive Date: 20090504
  Receipt Date: 20090422
  Transmission Date: 20091009
  Serious: Yes (Hospitalization, Other)
  Sender: FDA-Public Use
  Company Number: PR-MERCK-0706USA00991

PATIENT
  Age: 79 Year
  Sex: Male

DRUGS (3)
  1. FOSAMAX [Suspect]
     Indication: BONE DISORDER
     Route: 048
     Dates: start: 20020201, end: 20030101
  2. [THERAPY UNSPECIFIED] [Concomitant]
     Indication: HYPERTENSION
     Route: 065
     Dates: start: 19800101
  3. AREDIA [Concomitant]
     Route: 065
     Dates: start: 20031126

REACTIONS (29)
  - AORTIC ANEURYSM [None]
  - AORTIC ARTERIOSCLEROSIS [None]
  - ARTERIOSCLEROSIS [None]
  - CARDIOMEGALY [None]
  - CAROTID ARTERIOSCLEROSIS [None]
  - CAROTID ARTERY DISEASE [None]
  - CEREBRAL ISCHAEMIA [None]
  - DIVERTICULUM INTESTINAL [None]
  - DIZZINESS [None]
  - HAEMATOTYMPANUM [None]
  - HAEMATURIA [None]
  - HEADACHE [None]
  - INGUINAL HERNIA [None]
  - INTESTINAL OBSTRUCTION [None]
  - LACUNAR INFARCTION [None]
  - MASTOIDITIS [None]
  - NERVOUS SYSTEM DISORDER [None]
  - NEURODEGENERATIVE DISORDER [None]
  - ORAL INFECTION [None]
  - OSTEOMYELITIS [None]
  - OSTEONECROSIS [None]
  - PROSTATOMEGALY [None]
  - RENAL LIPOMATOSIS [None]
  - RHEUMATOID ARTHRITIS [None]
  - SPINAL COLUMN STENOSIS [None]
  - SPINAL OSTEOARTHRITIS [None]
  - SYNCOPE [None]
  - TRACHEAL DISORDER [None]
  - VERTIGO [None]
